FAERS Safety Report 5730129-7 (Version None)
Quarter: 2008Q2

REPORT INFORMATION
  Report Type: 
  Country: None (occurrence: None)
  Receive Date: 20080505
  Receipt Date: 20080505
  Transmission Date: 20081010
  Serious: Yes (Hospitalization)
  Sender: FDA-Public Use
  Company Number: None

PATIENT
  Age: 73 Year
  Sex: Male
  Weight: 88 kg

DRUGS (7)
  1. LYRICA [Suspect]
     Indication: DEPRESSION
     Route: 048
  2. LYRICA [Suspect]
     Indication: DIABETIC NEUROPATHY
     Route: 048
  3. LIPITOR [Concomitant]
  4. AMARYL [Concomitant]
  5. ASPIRIN [Concomitant]
  6. METFORMIN HCL [Concomitant]
  7. TYLENOL [Concomitant]

REACTIONS (2)
  - ANGIOEDEMA [None]
  - SPEECH DISORDER [None]
